FAERS Safety Report 6185012-2 (Version None)
Quarter: 2009Q2

REPORT INFORMATION
  Report Type: 
  Country: None (occurrence: None)
  Receive Date: 20090511
  Receipt Date: 20090324
  Transmission Date: 20091009
  Serious: No
  Sender: FDA-Public Use
  Company Number: A0775959A

PATIENT
  Sex: Male

DRUGS (1)
  1. COREG CR [Suspect]
     Route: 065

REACTIONS (2)
  - HYPOTENSION [None]
  - OEDEMA [None]
